FAERS Safety Report 8510561-9 (Version None)
Quarter: 2012Q3

REPORT INFORMATION
  Report Type: 
  Country: None (occurrence: None)
  Receive Date: 20120716
  Receipt Date: 20120702
  Transmission Date: 20120928
  Serious: Yes (Hospitalization)
  Sender: FDA-Public Use
  Company Number: IT-BIOGENIDEC-2012BI023224

PATIENT
  Age: 22 Year
  Sex: Female

DRUGS (3)
  1. TYSABRI [Suspect]
     Route: 042
  2. TYSABRI [Suspect]
     Indication: RELAPSING-REMITTING MULTIPLE SCLEROSIS
     Route: 042
     Dates: start: 20110915, end: 20120314
  3. LAMIVUDINE [Concomitant]

REACTIONS (3)
  - PYELONEPHRITIS ACUTE [None]
  - DYSURIA [None]
  - PYREXIA [None]
